FAERS Safety Report 7674568-6 (Version None)
Quarter: 2011Q3

REPORT INFORMATION
  Report Type: 
  Country: None (occurrence: None)
  Receive Date: 20110810
  Receipt Date: 20110728
  Transmission Date: 20111222
  Serious: Yes (Death, Hospitalization, Other)
  Sender: FDA-Public Use
  Company Number: JP-ROCHE-790035

PATIENT
  Sex: Female
  Weight: 42 kg

DRUGS (7)
  1. AVASTIN [Suspect]
     Indication: LUNG ADENOCARCINOMA
     Dosage: FORM: INJECTION
     Route: 041
     Dates: start: 20110408, end: 20110428
  2. AVASTIN [Suspect]
     Route: 041
     Dates: start: 20110408, end: 20110608
  3. CARBOPLATIN [Suspect]
     Indication: LUNG ADENOCARCINOMA
     Route: 042
     Dates: start: 20110608, end: 20110617
  4. DOCETAXEL [Suspect]
     Indication: LUNG ADENOCARCINOMA
     Route: 042
     Dates: start: 20110408, end: 20110428
  5. PACLITAXEL [Suspect]
     Indication: LUNG ADENOCARCINOMA
     Route: 042
     Dates: start: 20110608, end: 20110617
  6. TARCEVA [Concomitant]
     Indication: LUNG ADENOCARCINOMA
     Dosage: DOSAGE IS UNCERTAIN
     Route: 048
     Dates: start: 20100630, end: 20110519
  7. IRESSA [Concomitant]
     Dosage: DOSAGE IS UNCERTAIN
     Route: 048
     Dates: start: 20110520, end: 20110606

REACTIONS (4)
  - INFECTIOUS PERITONITIS [None]
  - LYMPHANGIOSIS CARCINOMATOSA [None]
  - RESPIRATORY FAILURE [None]
  - SMALL INTESTINAL PERFORATION [None]
